FAERS Safety Report 7195927-4 (Version None)
Quarter: 2010Q4

REPORT INFORMATION
  Report Type: 
  Country: None (occurrence: None)
  Receive Date: 20101223
  Receipt Date: 20101011
  Transmission Date: 20110411
  Serious: No
  Sender: FDA-Public Use
  Company Number: US-AMGEN-KDL444529

PATIENT

DRUGS (7)
  1. ENBREL [Suspect]
     Indication: PRODUCT USED FOR UNKNOWN INDICATION
     Dosage: 50 MG, QWK
     Route: 058
  2. ALENDRONATE SODIUM [Concomitant]
     Dosage: 5 MG, UNK
  3. METHOTREXATE [Concomitant]
     Dosage: 2.5 MG, UNK
  4. FOLIC ACID [Concomitant]
     Dosage: 1 MG, UNK
  5. HYDROCHLOROTHIAZIDE [Concomitant]
     Dosage: 25 MG, UNK
  6. PHENAZOPYRIDINE HCL TAB [Concomitant]
     Dosage: 95 MG, UNK
  7. ASCORBIC ACID [Concomitant]
     Dosage: 100 MG, UNK

REACTIONS (6)
  - EAR INFECTION [None]
  - FUNGAL INFECTION [None]
  - PERINEAL INFECTION [None]
  - SINUSITIS [None]
  - URINARY TRACT INFECTION [None]
  - VAGINAL DISCHARGE [None]
